FAERS Safety Report 9513755 (Version 2)
Quarter: 2013Q3

REPORT INFORMATION
  Report Type: Spontaneous
  Country: ZA (occurrence: ZA)
  Receive Date: 20130910
  Receipt Date: 20130917
  Transmission Date: 20140515
  Serious: Yes (Other)
  Sender: FDA-Public Use
  Company Number: ALCN2013ZA004509

PATIENT
  Age: 78 Year
  Sex: Female
  Weight: 95 kg

DRUGS (3)
  1. NEVANAC [Suspect]
     Indication: DRY EYE
     Dosage: UNK UNK, QD
     Route: 047
     Dates: start: 20130708, end: 20130805
  2. NEVANAC [Suspect]
     Indication: KERATITIS
  3. TEARGEL [Concomitant]
     Indication: DRY EYE
     Dosage: UNK, QD
     Dates: start: 20130708

REACTIONS (1)
  - Ulcerative keratitis [Recovering/Resolving]
